FAERS Safety Report 8030366-5 (Version None)
Quarter: 2012Q1

REPORT INFORMATION
  Report Type: 
  Country: None (occurrence: None)
  Receive Date: 20120109
  Receipt Date: 20120109
  Transmission Date: 20120608
  Serious: Yes (Other)
  Sender: FDA-Public Use
  Company Number: None

PATIENT
  Sex: Female

DRUGS (1)
  1. SODIUM FERRIC GLUCONATE COMPLEX [Suspect]
     Indication: ANAEMIA
     Dosage: 250MG
     Route: 042
     Dates: start: 20111209, end: 20111209

REACTIONS (5)
  - URTICARIA [None]
  - BACK PAIN [None]
  - BURNING SENSATION [None]
  - OEDEMA PERIPHERAL [None]
  - ARTHRALGIA [None]
